APPROVED DRUG PRODUCT: IONOSOL MB AND DEXTROSE 5% IN PLASTIC CONTAINER
Active Ingredient: DEXTROSE; MAGNESIUM CHLORIDE; POTASSIUM CHLORIDE; POTASSIUM PHOSPHATE, MONOBASIC; SODIUM LACTATE; SODIUM PHOSPHATE, MONOBASIC ANHYDROUS
Strength: 5GM/100ML;30MG/100ML;141MG/100ML;15MG/100ML;260MG/100ML;25MG/100ML
Dosage Form/Route: INJECTABLE;INJECTION
Application: N019513 | Product #001
Applicant: OTSUKA ICU MEDICAL LLC
Approved: May 8, 1986 | RLD: No | RS: No | Type: RX